FAERS Safety Report 16834132 (Version 8)
Quarter: 2021Q3

REPORT INFORMATION
  Report Type: Spontaneous
  Country: US (occurrence: US)
  Receive Date: 20190920
  Receipt Date: 20210802
  Transmission Date: 20211014
  Serious: Yes (Other)
  Sender: FDA-Public Use
  Company Number: US-PFIZER INC-2019406403

PATIENT
  Age: 82 Year
  Sex: Male
  Weight: 122 kg

DRUGS (19)
  1. SYMBICORT [Concomitant]
     Active Substance: BUDESONIDE\FORMOTEROL FUMARATE DIHYDRATE
     Dosage: UNK
     Dates: start: 2019
  2. POTASSIUM CHLORIDE. [Concomitant]
     Active Substance: POTASSIUM CHLORIDE
     Dosage: 20 MG, UNK
     Dates: start: 2005
  3. ATORVASTATIN [Concomitant]
     Active Substance: ATORVASTATIN
     Dosage: 10 MG, UNK
     Dates: start: 2000
  4. HYDRALAZINE [Concomitant]
     Active Substance: HYDRALAZINE HYDROCHLORIDE
     Dosage: 50 MG, UNK
     Dates: start: 2005
  5. METFORMIN HYDROCHLORIDE. [Concomitant]
     Active Substance: METFORMIN HYDROCHLORIDE
     Dosage: UNK
  6. LYRICA [Suspect]
     Active Substance: PREGABALIN
     Indication: PAIN IN EXTREMITY
     Dosage: 150 MG, 3X/DAY
     Route: 048
     Dates: start: 20201118
  7. ELIQUIS [Concomitant]
     Active Substance: APIXABAN
     Dosage: 5 MG, UNK
     Dates: start: 2018
  8. RANITIDINE. [Concomitant]
     Active Substance: RANITIDINE
     Dosage: 150 MG, UNK
  9. OMEPRAZOLE. [Concomitant]
     Active Substance: OMEPRAZOLE
     Dosage: 40 MG, UNK
     Dates: start: 2019
  10. LYRICA [Suspect]
     Active Substance: PREGABALIN
     Indication: BLOOD GLUCOSE ABNORMAL
     Dosage: 150 MG, 3X/DAY
     Route: 048
     Dates: start: 2011
  11. LYRICA [Suspect]
     Active Substance: PREGABALIN
     Indication: DIABETIC NEUROPATHY
  12. AMLODIPINE AND VALSARTAN [Concomitant]
     Active Substance: AMLODIPINE\VALSARTAN
     Dosage: UNK (10?320)
     Dates: start: 2000
  13. DONEPEZIL HCL [Concomitant]
     Active Substance: DONEPEZIL HYDROCHLORIDE
     Dosage: 5 MG, UNK
     Dates: start: 2019
  14. JANUMET [Concomitant]
     Active Substance: METFORMIN HYDROCHLORIDE\SITAGLIPTIN PHOSPHATE
     Dosage: UNK (50/1000 MG)
     Dates: start: 2003
  15. VALSARTAN. [Concomitant]
     Active Substance: VALSARTAN
     Dosage: UNK
  16. LYRICA [Suspect]
     Active Substance: PREGABALIN
     Indication: NEURALGIA
     Dosage: 150 MG, 3X/DAY
     Route: 048
     Dates: start: 20161008
  17. ALLOPURINOL. [Concomitant]
     Active Substance: ALLOPURINOL
     Dosage: UNK (300)
     Dates: start: 1995
  18. GLIMEPIRIDE. [Concomitant]
     Active Substance: GLIMEPIRIDE
     Dosage: 4 MG, UNK
     Dates: start: 1999
  19. MAGNESIUM CITRATE. [Concomitant]
     Active Substance: MAGNESIUM CITRATE
     Dosage: UNK (100)
     Dates: start: 2016

REACTIONS (7)
  - Dementia [Unknown]
  - Cerebrovascular accident [Unknown]
  - Arthritis [Unknown]
  - Blood glucose increased [Unknown]
  - Neoplasm malignant [Not Recovered/Not Resolved]
  - Nervousness [Unknown]
  - Pain in extremity [Unknown]

NARRATIVE: CASE EVENT DATE: 2021
